FAERS Safety Report 14611635 (Version 2)
Quarter: 2018Q2

REPORT INFORMATION
  Report Type: Report from Study
  Country: DE (occurrence: DE)
  Receive Date: 20180308
  Receipt Date: 20180402
  Transmission Date: 20180711
  Serious: Yes (Hospitalization)
  Sender: FDA-Public Use
  Company Number: DE-ROCHE-2080645

PATIENT
  Age: 67 Year
  Sex: Female
  Weight: 99.5 kg

DRUGS (9)
  1. CARBOPLATIN. [Suspect]
     Active Substance: CARBOPLATIN
     Indication: NON-SMALL CELL LUNG CANCER STAGE IV
     Dosage: DATE OF MOST RECENT DOSE (795 MG) OF CARBOPLATIN PRIOR TO AE ONSET 31/JAN/2017?AREA UNDER THE CONCEN
     Route: 042
     Dates: start: 20161011
  2. CANDESARTAN. [Concomitant]
     Active Substance: CANDESARTAN
     Indication: HYPERTENSION
     Route: 065
     Dates: start: 20170708
  3. BEVACIZUMAB. [Suspect]
     Active Substance: BEVACIZUMAB
     Indication: NON-SMALL CELL LUNG CANCER STAGE IV
     Dosage: DATE OF MOST RECENT DOSE 1500 MG OF BEVACIZUMAB PRIOR TO AE ONSET 13/FEB/2018
     Route: 042
     Dates: start: 20161011
  4. PREGABALIN. [Concomitant]
     Active Substance: PREGABALIN
     Indication: POLYNEUROPATHY
     Route: 065
     Dates: start: 20170314
  5. TURIXIN [Concomitant]
     Active Substance: MUPIROCIN CALCIUM
     Indication: BACTERIAL RHINITIS
     Route: 065
     Dates: start: 20171212
  6. CIPROFLOXACIN. [Concomitant]
     Active Substance: CIPROFLOXACIN
     Indication: BRONCHITIS
     Route: 065
     Dates: start: 20180216, end: 20180220
  7. CLEXANE [Concomitant]
     Active Substance: ENOXAPARIN SODIUM
     Indication: THROMBOSIS PROPHYLAXIS
     Route: 065
     Dates: start: 20161213
  8. PACLITAXEL. [Suspect]
     Active Substance: PACLITAXEL
     Indication: NON-SMALL CELL LUNG CANCER STAGE IV
     Dosage: DATE OF MOST RECENT DOSE 300 MG OF PACLITAXEL PRIOR TO AE ONSET 31/JAN/2017
     Route: 042
     Dates: start: 20161011
  9. L-THYROXIN [Concomitant]
     Active Substance: LEVOTHYROXINE SODIUM
     Indication: HYPOTHYROIDISM

REACTIONS (1)
  - Bone abscess [Not Recovered/Not Resolved]

NARRATIVE: CASE EVENT DATE: 20180210
